FAERS Safety Report 25072948 (Version 2)
Quarter: 2025Q2

REPORT INFORMATION
  Report Type: Spontaneous
  Country: JP (occurrence: JP)
  Receive Date: 20250313
  Receipt Date: 20250410
  Transmission Date: 20250717
  Serious: Yes (Hospitalization)
  Sender: SUNOVION
  Company Number: JP-SMPA-2025SPA002853

PATIENT

DRUGS (1)
  1. RELUGOLIX [Suspect]
     Active Substance: RELUGOLIX
     Indication: Uterine leiomyoma
     Dosage: 40 MG, QD
     Route: 048
     Dates: start: 202402, end: 202404

REACTIONS (2)
  - Uterine myoma expulsion [Recovered/Resolved]
  - Uterine leiomyosarcoma [Recovered/Resolved]

NARRATIVE: CASE EVENT DATE: 20240401
